FAERS Safety Report 11442649 (Version 1)
Quarter: 2015Q3

REPORT INFORMATION
  Report Type: Spontaneous
  Country: PT (occurrence: PT)
  Receive Date: 20150901
  Receipt Date: 20150901
  Transmission Date: 20151125
  Serious: Yes (Other)
  Sender: FDA-Public Use
  Company Number: PT-GLAXOSMITHKLINE-PT2015GSK121713

PATIENT
  Sex: Male

DRUGS (1)
  1. BUPROPION. [Suspect]
     Active Substance: BUPROPION
     Indication: PRODUCT USED FOR UNKNOWN INDICATION
     Dosage: 150 MG, QD
     Dates: start: 201402

REACTIONS (7)
  - Pruritus [Unknown]
  - Cognitive disorder [Unknown]
  - Suicide attempt [Unknown]
  - VIIth nerve paralysis [Unknown]
  - Memory impairment [Unknown]
  - Disorientation [Unknown]
  - Motor dysfunction [Unknown]
